FAERS Safety Report 26216488 (Version 1)
Quarter: 2025Q4

REPORT INFORMATION
  Report Type: Report from Study
  Country: GB (occurrence: None)
  Receive Date: 20251231
  Receipt Date: 20251231
  Transmission Date: 20260117
  Serious: Yes (Life-Threatening, Hospitalization)
  Sender: Alvotech
  Company Number: GB-ALVOTECHPMS-2025-ALVOTECHPMS-006164

PATIENT
  Age: 76 Year
  Sex: Female

DRUGS (1)
  1. USTEKINUMAB [Suspect]
     Active Substance: USTEKINUMAB
     Indication: Crohn^s disease
     Dosage: SOLUTION FOR?INJECTION PRE-FILLED SYRINGES
     Route: 058
     Dates: start: 202504

REACTIONS (5)
  - Abdominal abscess [Unknown]
  - Fall [Unknown]
  - Haematoma [Unknown]
  - Urinary tract infection [Unknown]
  - Sepsis [Unknown]
